FAERS Safety Report 6010125-5 (Version None)
Quarter: 2008Q4

REPORT INFORMATION
  Report Type: 
  Country: None (occurrence: None)
  Receive Date: 20081217
  Receipt Date: 20081217
  Transmission Date: 20090506
  Serious: Yes (Other)
  Sender: FDA-Public Use
  Company Number: None

PATIENT
  Age: 74 Year
  Sex: Female
  Weight: 68.0396 kg

DRUGS (3)
  1. ACTONEL [Suspect]
     Indication: OSTEOPENIA
     Dosage: 150 MG ONE MONTH
     Dates: start: 20080901
  2. ACTONEL [Suspect]
     Indication: OSTEOPENIA
     Dosage: 150 MG ONE MONTH
     Dates: start: 20081001
  3. ACTONEL [Suspect]
     Indication: OSTEOPENIA
     Dosage: 150 MG ONE MONTH
     Dates: start: 20081101

REACTIONS (2)
  - MYALGIA [None]
  - TENDON PAIN [None]
